FAERS Safety Report 22166629 (Version 1)
Quarter: 2023Q2

REPORT INFORMATION
  Report Type: Spontaneous
  Country: US (occurrence: US)
  Receive Date: 20230403
  Receipt Date: 20230403
  Transmission Date: 20230722
  Serious: No
  Sender: FDA-Public Use
  Company Number: ENDG22-02101

PATIENT
  Sex: Female

DRUGS (3)
  1. HYDROXYUREA [Suspect]
     Active Substance: HYDROXYUREA
     Indication: Essential thrombocythaemia
     Dosage: 2 DF, DAILY
     Route: 065
     Dates: start: 2019
  2. HYDROXYUREA [Suspect]
     Active Substance: HYDROXYUREA
     Dosage: 1 DF, DAILY
     Route: 065
     Dates: end: 2022
  3. HYDROXYUREA [Suspect]
     Active Substance: HYDROXYUREA
     Dosage: 1 DF, DAILY
     Route: 065
     Dates: start: 20220328

REACTIONS (5)
  - Chest pain [Recovered/Resolved]
  - Chest discomfort [Recovered/Resolved]
  - Burning sensation [Recovered/Resolved]
  - Abdominal discomfort [Recovered/Resolved]
  - Off label use [Recovered/Resolved]

NARRATIVE: CASE EVENT DATE: 20190101
